FAERS Safety Report 7621458-0 (Version None)
Quarter: 2011Q3

REPORT INFORMATION
  Report Type: 
  Country: None (occurrence: None)
  Receive Date: 20110719
  Receipt Date: 20110712
  Transmission Date: 20111222
  Serious: Yes (Other)
  Sender: FDA-Public Use
  Company Number: BR-ABBOTT-11P-020-0838469-00

PATIENT
  Sex: Female
  Weight: 68 kg

DRUGS (10)
  1. DEFLAZACORT [Concomitant]
     Indication: MUSCULOSKELETAL PAIN
     Route: 048
  2. AMITRIPTYLINE HCL [Concomitant]
     Indication: FIBROMYALGIA
     Route: 048
  3. VITAMIN D 600 | CALCIUM (OSCAL D) [Concomitant]
     Indication: VITAMIN SUPPLEMENTATION
     Route: 048
  4. CYCLOBENAZPRINE [Concomitant]
     Indication: FIBROMYALGIA
  5. OMEPRAZOLE [Concomitant]
     Indication: PROPHYLAXIS
     Route: 048
  6. OMEPRAZOLE [Concomitant]
     Indication: GASTRIC DISORDER
  7. SULFASALAZINE [Concomitant]
     Indication: RHEUMATOID ARTHRITIS
     Route: 048
  8. HUMIRA [Suspect]
     Indication: ANKYLOSING SPONDYLITIS
     Route: 058
     Dates: start: 20100401
  9. HUMIRA [Suspect]
     Route: 058
  10. CYCLOBENAZPRINE [Concomitant]
     Route: 048

REACTIONS (1)
  - OVARIAN CYST [None]
